FAERS Safety Report 6267703-8 (Version None)
Quarter: 2009Q3

REPORT INFORMATION
  Report Type: 
  Country: None (occurrence: None)
  Receive Date: 20090714
  Receipt Date: 20090702
  Transmission Date: 20100115
  Serious: Yes (Other)
  Sender: FDA-Public Use
  Company Number: GB-PFIZER INC-2009235280

PATIENT
  Age: 27 Year

DRUGS (1)
  1. CABERGOLINE [Suspect]
     Indication: PITUITARY TUMOUR BENIGN
     Dosage: HALF A TABLET WEEKLY
     Route: 048
     Dates: start: 20060901, end: 20080201

REACTIONS (2)
  - GAIT DISTURBANCE [None]
  - HIP DYSPLASIA [None]
